FAERS Safety Report 21245398 (Version 14)
Quarter: 2022Q4

REPORT INFORMATION
  Report Type: Report from Study
  Country: AU (occurrence: AU)
  Receive Date: 20220824
  Receipt Date: 20221223
  Transmission Date: 20230113
  Serious: Yes (Hospitalization)
  Sender: FDA-Public Use
  Company Number: AU-BIOGEN-2022BI01142055

PATIENT
  Sex: Female
  Weight: 120 kg

DRUGS (12)
  1. TYSABRI [Suspect]
     Active Substance: NATALIZUMAB
     Indication: Relapsing-remitting multiple sclerosis
     Dosage: 300 MG/15 ML
     Route: 050
     Dates: start: 20220729
  2. TYSABRI [Suspect]
     Active Substance: NATALIZUMAB
     Dosage: 300 MG/15 ML
     Route: 050
     Dates: start: 2022
  3. NORETHINDRONE [Suspect]
     Active Substance: NORETHINDRONE
     Indication: Menstruation irregular
     Dosage: ONLY CONTRACEPTIVE PILL
     Route: 050
     Dates: start: 2022
  4. NORETHINDRONE [Suspect]
     Active Substance: NORETHINDRONE
     Route: 050
     Dates: end: 2022
  5. VITAMIN D [Concomitant]
     Active Substance: VITAMIN D NOS
     Indication: Product used for unknown indication
     Route: 050
  6. NAPROSYN [Concomitant]
     Active Substance: NAPROXEN
     Indication: Dysmenorrhoea
     Dosage: PRN - AS NECESSARY
     Route: 050
  7. PANADOL [Concomitant]
     Active Substance: ACETAMINOPHEN
     Indication: Pain
     Dosage: PRN-AS NECESSARY
     Route: 050
  8. PANADOL [Concomitant]
     Active Substance: ACETAMINOPHEN
     Dosage: AS NECESSARY
     Route: 050
  9. IBUPROFEN [Concomitant]
     Active Substance: IBUPROFEN
     Indication: Pain
     Dosage: PRN-AS NECESSARY
     Route: 050
  10. KETAMINE [Concomitant]
     Active Substance: KETAMINE
     Indication: Pain
     Dosage: ON TWO DAYS, NO EXACT DOSAGE KNOWN BY FAMILY
     Route: 050
  11. PYRIDOXINE HYDROCHLORIDE [Concomitant]
     Active Substance: PYRIDOXINE HYDROCHLORIDE
     Indication: Product used for unknown indication
     Dosage: 2 DOSAGE FORMS- 2 TABLETS AT NIGHT
     Route: 050
  12. IBUPROFEN [Concomitant]
     Active Substance: IBUPROFEN
     Indication: Product used for unknown indication
     Dosage: PRN-AS NECESSARY
     Route: 050

REACTIONS (44)
  - Pain [Not Recovered/Not Resolved]
  - Multiple sclerosis pseudo relapse [Not Recovered/Not Resolved]
  - Coordination abnormal [Not Recovered/Not Resolved]
  - Off label use [Not Recovered/Not Resolved]
  - Peripheral swelling [Not Recovered/Not Resolved]
  - Anxiety [Not Recovered/Not Resolved]
  - Burning sensation [Not Recovered/Not Resolved]
  - Dry mouth [Not Recovered/Not Resolved]
  - Hypoaesthesia [Unknown]
  - Dysphagia [Unknown]
  - Catheter site pain [Not Recovered/Not Resolved]
  - Urinary incontinence [Not Recovered/Not Resolved]
  - Micturition urgency [Not Recovered/Not Resolved]
  - Enterobiasis [Unknown]
  - Poor quality sleep [Not Recovered/Not Resolved]
  - Eye movement disorder [Unknown]
  - Flushing [Recovered/Resolved]
  - Pain in extremity [Recovered/Resolved]
  - Flashback [Unknown]
  - Muscle spasms [Unknown]
  - Limb discomfort [Unknown]
  - Slow speech [Unknown]
  - Depressed mood [Unknown]
  - Oedema peripheral [Unknown]
  - Weight increased [Unknown]
  - Muscular weakness [Not Recovered/Not Resolved]
  - Neck pain [Recovered/Resolved]
  - Muscle spasms [Not Recovered/Not Resolved]
  - Musculoskeletal stiffness [Not Recovered/Not Resolved]
  - Dysarthria [Recovered/Resolved]
  - Rash erythematous [Recovered/Resolved]
  - Stress [Recovered/Resolved]
  - Loss of control of legs [Recovered/Resolved]
  - COVID-19 [Not Recovered/Not Resolved]
  - Multiple sclerosis relapse [Not Recovered/Not Resolved]
  - Factor V Leiden mutation [Unknown]
  - Pigmentation disorder [Recovered/Resolved]
  - Skin striae [Unknown]
  - Fatigue [Recovered/Resolved]
  - Headache [Not Recovered/Not Resolved]
  - Pruritus [Not Recovered/Not Resolved]
  - Nausea [Recovered/Resolved]
  - Nasopharyngitis [Not Recovered/Not Resolved]
  - Arthralgia [Unknown]

NARRATIVE: CASE EVENT DATE: 20220101
